FAERS Safety Report 7903922-X (Version None)
Quarter: 2011Q4

REPORT INFORMATION
  Report Type: 
  Country: None (occurrence: None)
  Receive Date: 20111109
  Receipt Date: 20111031
  Transmission Date: 20120403
  Serious: Yes (Other)
  Sender: FDA-Public Use
  Company Number: BR-SANOFI-AVENTIS-2011SA071809

PATIENT
  Age: 65 Year
  Sex: Female
  Weight: 52 kg

DRUGS (8)
  1. ALL OTHER THERAPEUTIC PRODUCTS [Concomitant]
     Indication: GASTRIC DISORDER
     Route: 048
  2. ORAL ANTIDIABETICS [Concomitant]
     Route: 048
     Dates: start: 20110701
  3. AUTOPEN 24 [Suspect]
     Indication: DEVICE THERAPY
  4. LANTUS [Suspect]
     Dosage: THERAPY START: 2 YEARS AGODOSE: IN MORNING
     Route: 065
     Dates: start: 20090101
  5. GLIMEPIRIDE [Concomitant]
     Route: 048
  6. CALCIUM [Concomitant]
     Indication: BONE DISORDER
     Route: 048
     Dates: start: 20110701
  7. ALL OTHER THERAPEUTIC PRODUCTS [Concomitant]
     Route: 048
  8. ALPRAZOLAM [Concomitant]
     Indication: SLEEP DISORDER
     Route: 048

REACTIONS (8)
  - INJECTION SITE REACTION [None]
  - MEMORY IMPAIRMENT [None]
  - INJECTION SITE NODULE [None]
  - DRUG ADMINISTRATION ERROR [None]
  - CEREBROVASCULAR ACCIDENT [None]
  - INJECTION SITE PAIN [None]
  - HYPERGLYCAEMIA [None]
  - ASTHENIA [None]
